FAERS Safety Report 13246341 (Version 4)
Quarter: 2017Q2

REPORT INFORMATION
  Report Type: Report from Study
  Country: CA (occurrence: CA)
  Receive Date: 20170217
  Receipt Date: 20170601
  Transmission Date: 20170830
  Serious: Yes (Other)
  Sender: FDA-Public Use
  Company Number: CA-TAKEDA-2016TUS020087

PATIENT
  Age: 51 Year
  Sex: Female

DRUGS (7)
  1. CIPRO [Concomitant]
     Active Substance: CIPROFLOXACIN HYDROCHLORIDE
     Dosage: 500 MG, BID
  2. VEDOLIZUMAB [Suspect]
     Active Substance: VEDOLIZUMAB
     Indication: CROHN^S DISEASE
     Dosage: 300 MG, UNK
     Route: 042
     Dates: start: 20160921
  3. MTX [Concomitant]
     Active Substance: METHOTREXATE SODIUM
     Dosage: 25 MG/1ML, 1/WEEK
     Route: 058
  4. CHOLESTYRAMINE. [Concomitant]
     Active Substance: CHOLESTYRAMINE
     Dosage: 4 G, QD
  5. PROGESTERONE. [Concomitant]
     Active Substance: PROGESTERONE
     Dosage: 100 MG, BID
  6. MTX [Concomitant]
     Active Substance: METHOTREXATE SODIUM
     Dosage: 12.5 MG, UNK
     Route: 048
  7. CODEINE [Concomitant]
     Active Substance: CODEINE
     Dosage: 7.5 MG, UNK

REACTIONS (3)
  - Blood pressure increased [Not Recovered/Not Resolved]
  - Hypoaesthesia [Unknown]
  - Intestinal resection [Unknown]

NARRATIVE: CASE EVENT DATE: 20170331
